FAERS Safety Report 4414250-1 (Version None)
Quarter: 2004Q3

REPORT INFORMATION
  Report Type: 
  Country: None (occurrence: None)
  Receive Date: 20040729
  Receipt Date: 20040701
  Transmission Date: 20050211
  Serious: Yes (Hospitalization)
  Sender: FDA-Public Use
  Company Number: M2004-0977

PATIENT
  Age: 44 Year
  Sex: Male

DRUGS (5)
  1. RIMACTANE [Suspect]
     Indication: ENDOCARDITIS
  2. SANDIMMUNE [Suspect]
     Indication: RENAL TRANSPLANT
     Dosage: 300 MG AM AND 200 MG PM
  3. GENTAMICIN [Suspect]
     Indication: ENDOCARDITIS STAPHYLOCOCCAL
  4. PREDNISONE TAB [Concomitant]
  5. AZATHIOPRINE [Concomitant]

REACTIONS (8)
  - AORTIC VALVE INCOMPETENCE [None]
  - BLOOD CREATINE INCREASED [None]
  - BODY TEMPERATURE INCREASED [None]
  - CARDIAC MURMUR [None]
  - CHILLS [None]
  - COMPLICATIONS OF TRANSPLANTED KIDNEY [None]
  - MITRAL VALVE INCOMPETENCE [None]
  - STAPHYLOCOCCAL INFECTION [None]
